FAERS Safety Report 13121249 (Version 1)
Quarter: 2017Q1

REPORT INFORMATION
  Report Type: Spontaneous
  Country: JP (occurrence: JP)
  Receive Date: 20170117
  Receipt Date: 20170117
  Transmission Date: 20170428
  Serious: Yes (Hospitalization, Other)
  Sender: FDA-Public Use
  Company Number: JP-PFIZER INC-2017012437

PATIENT
  Age: 80 Year
  Sex: Male
  Weight: 68 kg

DRUGS (4)
  1. SUTENT [Suspect]
     Active Substance: SUNITINIB MALATE
     Indication: RENAL CELL CARCINOMA
     Dosage: 25 MG, 1X/DAY
     Route: 048
     Dates: start: 20161018, end: 20161024
  2. SUTENT [Suspect]
     Active Substance: SUNITINIB MALATE
     Dosage: 37.5 MG, 1X/DAY
     Route: 048
     Dates: start: 20161025
  3. LOSARTAN. [Concomitant]
     Active Substance: LOSARTAN
  4. AMLODIPIN /00972401/ [Concomitant]
     Active Substance: AMLODIPINE BESYLATE

REACTIONS (3)
  - Hepatic function abnormal [Recovering/Resolving]
  - Pancreatitis acute [Recovering/Resolving]
  - Platelet count decreased [Recovered/Resolved]

NARRATIVE: CASE EVENT DATE: 20161031
